FAERS Safety Report 9378668 (Version 3)
Quarter: 2013Q3

REPORT INFORMATION
  Report Type: Spontaneous
  Country: FR (occurrence: FR)
  Receive Date: 20130702
  Receipt Date: 20130918
  Transmission Date: 20140515
  Serious: Yes (Hospitalization, Disabling, Other)
  Sender: FDA-Public Use
  Company Number: FR-CELGENEUS-056-21880-13044812

PATIENT
  Age: 40 Year
  Sex: Male

DRUGS (8)
  1. REVLIMID [Suspect]
     Indication: PLASMA CELL MYELOMA
     Dosage: 25 MILLIGRAM
     Route: 048
     Dates: start: 20100819, end: 201012
  2. TRAIM [Concomitant]
     Indication: PRODUCT USED FOR UNKNOWN INDICATION
     Dosage: 20 MILLIGRAM
     Route: 065
     Dates: start: 20100819
  3. KARDEGIC [Concomitant]
     Indication: PRODUCT USED FOR UNKNOWN INDICATION
     Dosage: 75 MILLIGRAM
     Route: 065
     Dates: start: 20100819
  4. DEXAMETHASONE [Concomitant]
     Indication: PLASMA CELL MYELOMA
     Dosage: 10.7143 MILLIGRAM
     Route: 065
     Dates: start: 20100819
  5. NEURONTIN [Concomitant]
     Indication: NEUROPATHY PERIPHERAL
     Dosage: 2400 MILLIGRAM
     Route: 065
  6. LYRICA [Concomitant]
     Indication: NEUROPATHY PERIPHERAL
     Dosage: 150 MILLIGRAM
     Route: 065
     Dates: end: 201012
  7. TOPALGIC LP [Concomitant]
     Indication: NEUROPATHY PERIPHERAL
     Dosage: 200 MILLIGRAM
     Route: 065
     Dates: end: 201012
  8. RIVOTRIL [Concomitant]
     Indication: NEUROPATHY PERIPHERAL
     Dosage: 200 MILLIGRAM
     Route: 065
     Dates: end: 201012

REACTIONS (15)
  - Ataxia [Unknown]
  - Cognitive disorder [Recovered/Resolved]
  - Amnesia [Recovered/Resolved]
  - Pancytopenia [Unknown]
  - Diarrhoea infectious [Unknown]
  - Neutropenia [Unknown]
  - Peripheral sensorimotor neuropathy [Unknown]
  - Decubitus ulcer [Unknown]
  - Psychomotor skills impaired [Unknown]
  - Somnolence [Unknown]
  - Apathy [Unknown]
  - Decreased appetite [Unknown]
  - Areflexia [Unknown]
  - Cerebral hypoperfusion [Unknown]
  - Infection [Unknown]
